FAERS Safety Report 21138528 (Version 6)
Quarter: 2022Q4

REPORT INFORMATION
  Report Type: Spontaneous
  Country: CA (occurrence: CA)
  Receive Date: 20220727
  Receipt Date: 20221221
  Transmission Date: 20230113
  Serious: Yes (Other)
  Sender: FDA-Public Use
  Company Number: CA-AMERICAN REGENT INC-2022002096

PATIENT
  Age: 24 Year
  Sex: Female

DRUGS (2)
  1. VENOFER [Suspect]
     Active Substance: IRON SUCROSE
     Indication: Iron deficiency anaemia
     Dosage: 300 MILLIGRAM
     Dates: start: 20220704, end: 20220704
  2. VENOFER [Suspect]
     Active Substance: IRON SUCROSE
     Indication: Anaemia of pregnancy
     Dosage: 300 MILLIGRAM IN 250 ML NS
     Route: 042
     Dates: start: 20220711, end: 20220711

REACTIONS (5)
  - Sensory disturbance [Recovered/Resolved]
  - Maternal exposure during pregnancy [Unknown]
  - Hypotension [Recovered/Resolved]
  - Product quality issue [Unknown]
  - Incorrect product administration duration [Unknown]

NARRATIVE: CASE EVENT DATE: 20220704
